FAERS Safety Report 14044681 (Version 3)
Quarter: 2018Q1

REPORT INFORMATION
  Report Type: Spontaneous
  Country: DE (occurrence: DE)
  Receive Date: 20171005
  Receipt Date: 20180104
  Transmission Date: 20180508
  Serious: Yes (Hospitalization)
  Sender: FDA-Public Use
  Company Number: DE-UCBSA-2017039383

PATIENT
  Age: 16 Year
  Sex: Male
  Weight: 60 kg

DRUGS (6)
  1. LEVETIRACETAM UCB [Suspect]
     Active Substance: LEVETIRACETAM
     Indication: PRODUCT USED FOR UNKNOWN INDICATION
     Dosage: 500 MG, 2X/DAY (BID)
     Dates: start: 2014, end: 2014
  2. LEVETIRACETAM UCB [Suspect]
     Active Substance: LEVETIRACETAM
     Dosage: 250 MG, 2X/DAY (BID)
     Dates: start: 2014
  3. LEVETIRACETAM UCB [Suspect]
     Active Substance: LEVETIRACETAM
     Dosage: 1000 MG, 2X/DAY (BID)
  4. LORAZEPAM. [Concomitant]
     Active Substance: LORAZEPAM
     Indication: SEIZURE
  5. LEVETIRACETAM UCB [Suspect]
     Active Substance: LEVETIRACETAM
     Dosage: 500MG-0-1000MG, 2X/DAY (BID)
  6. LEVETIRACETAM UCB [Suspect]
     Active Substance: LEVETIRACETAM
     Dosage: 500 MG, 2X/DAY (BID)
     Dates: start: 2016

REACTIONS (9)
  - Mood swings [Unknown]
  - Seizure [Recovered/Resolved]
  - Drug level decreased [Unknown]
  - Sleep disorder [Recovering/Resolving]
  - Decreased appetite [Unknown]
  - Hemiparesis [Unknown]
  - Intentional product misuse [Unknown]
  - Headache [Unknown]
  - Affect lability [Unknown]

NARRATIVE: CASE EVENT DATE: 20160617
